FAERS Safety Report 10901679 (Version 1)
Quarter: 2015Q1

REPORT INFORMATION
  Report Type: Spontaneous
  Country: US (occurrence: US)
  Receive Date: 20150310
  Receipt Date: 20150310
  Transmission Date: 20150721
  Serious: Yes (Hospitalization)
  Sender: FDA-Public Use
  Company Number: US-SA-2015SA017291

PATIENT
  Age: 65 Year
  Sex: Male

DRUGS (9)
  1. DAPSONE. [Concomitant]
     Active Substance: DAPSONE
  2. VITAMIN D3 [Concomitant]
     Active Substance: CHOLECALCIFEROL
  3. VITAMIN C [Concomitant]
     Active Substance: ASCORBIC ACID
  4. HYDRALAZINE [Concomitant]
     Active Substance: HYDRALAZINE HYDROCHLORIDE
     Dosage: 02-03 TIMES PER DAY
     Dates: start: 20150105
  5. CARVEDILOL. [Concomitant]
     Active Substance: CARVEDILOL
     Dosage: I AT BED AND ONE AT A.M.
     Dates: start: 20150105
  6. CALCITROL [Concomitant]
     Active Substance: CALCITRIOL
     Dates: start: 20150105
  7. RENVELA [Suspect]
     Active Substance: SEVELAMER CARBONATE
     Indication: ACUTE KIDNEY INJURY
     Route: 048
     Dates: start: 20150105
  8. CALCIUM [Concomitant]
     Active Substance: CALCIUM
  9. AMLODIPINE [Concomitant]
     Active Substance: AMLODIPINE BESYLATE
     Dates: start: 20150105

REACTIONS (2)
  - Microscopic polyangiitis [Not Recovered/Not Resolved]
  - Antineutrophil cytoplasmic antibody [Not Recovered/Not Resolved]

NARRATIVE: CASE EVENT DATE: 20150105
